FAERS Safety Report 6531887-4 (Version None)
Quarter: 2010Q1

REPORT INFORMATION
  Report Type: 
  Country: None (occurrence: None)
  Receive Date: 20100108
  Receipt Date: 20091230
  Transmission Date: 20100710
  Serious: Yes (Hospitalization, Other)
  Sender: FDA-Public Use
  Company Number: US-JNJFOC-20100100425

PATIENT
  Sex: Male
  Weight: 78.93 kg

DRUGS (4)
  1. RISPERIDONE [Suspect]
     Indication: DEPRESSION
     Route: 048
  2. RISPERIDONE [Suspect]
     Route: 048
  3. PROZAC [Suspect]
     Indication: DEPRESSION
     Route: 048
  4. UNKNOWN MEDICATION [Concomitant]
     Indication: HYPERTENSION
     Route: 048

REACTIONS (8)
  - ABASIA [None]
  - CONFUSIONAL STATE [None]
  - DEPRESSED LEVEL OF CONSCIOUSNESS [None]
  - DEPRESSED MOOD [None]
  - DEPRESSION [None]
  - FEELING ABNORMAL [None]
  - HOSPITALISATION [None]
  - SPEECH DISORDER [None]
